FAERS Safety Report 5945814-1 (Version None)
Quarter: 2008Q4

REPORT INFORMATION
  Report Type: 
  Country: None (occurrence: None)
  Receive Date: 20081104
  Receipt Date: 20081017
  Transmission Date: 20090506
  Serious: Yes (Death)
  Sender: FDA-Public Use
  Company Number: 2008EU002290

PATIENT
  Age: 10 Year
  Sex: Male

DRUGS (5)
  1. PROGRAF [Suspect]
     Indication: LIVER TRANSPLANT
     Dosage: 1 MG, /D, ORAL
     Route: 048
     Dates: start: 20070524
  2. OMEPRAZOLE [Concomitant]
  3. PERSANTIN [Concomitant]
  4. URBASON (METHYLPREDNISOLONE) [Concomitant]
  5. VALCYTE [Concomitant]

REACTIONS (3)
  - APLASTIC ANAEMIA [None]
  - EPSTEIN-BARR VIRUS TEST POSITIVE [None]
  - MULTI-ORGAN FAILURE [None]
